FAERS Safety Report 9822038 (Version 1)
Quarter: 2014Q1

REPORT INFORMATION
  Report Type: Spontaneous
  Country: FR (occurrence: FR)
  Receive Date: 20140116
  Receipt Date: 20140116
  Transmission Date: 20141002
  Serious: Yes (Hospitalization)
  Sender: FDA-Public Use
  Company Number: FR-ASTRAZENECA-2014SE02236

PATIENT
  Age: 67 Year
  Sex: Female

DRUGS (3)
  1. CRESTOR [Suspect]
     Indication: HYPERCHOLESTEROLAEMIA
     Route: 048
     Dates: start: 201306, end: 201307
  2. METFORMINE [Concomitant]
     Indication: DIABETES MELLITUS
     Route: 048
     Dates: start: 2004
  3. JANUVIA [Concomitant]
     Indication: DIABETES MELLITUS
     Route: 048
     Dates: start: 2011

REACTIONS (1)
  - Suicidal ideation [Recovered/Resolved]
